FAERS Safety Report 11512044 (Version 1)
Quarter: 2015Q3

REPORT INFORMATION
  Report Type: Spontaneous
  Country: PH (occurrence: PH)
  Receive Date: 20150916
  Receipt Date: 20150916
  Transmission Date: 20151125
  Serious: Yes (Hospitalization, Other)
  Sender: FDA-Public Use
  Company Number: PH-009507513-1509PHL005542

PATIENT
  Age: 69 Year
  Sex: Male

DRUGS (1)
  1. COZAAR [Suspect]
     Active Substance: LOSARTAN POTASSIUM
     Indication: HYPERTENSION
     Dosage: 50MG, ONE TABLET, ONCE A DAY
     Route: 048

REACTIONS (2)
  - Cardiac arrest [Unknown]
  - Coma [Unknown]

NARRATIVE: CASE EVENT DATE: 201509
